FAERS Safety Report 14169633 (Version 1)
Quarter: 2017Q4

REPORT INFORMATION
  Report Type: Spontaneous
  Country: US (occurrence: US)
  Receive Date: 20171107
  Receipt Date: 20171107
  Transmission Date: 20180321
  Serious: Yes (Life-Threatening, Hospitalization, Disabling, Other)
  Sender: FDA-Public Use
  Company Number: None

PATIENT
  Age: 30 Year
  Sex: Male
  Weight: 54 kg

DRUGS (1)
  1. GAMMAGARD LIQUID [Suspect]
     Active Substance: HUMAN IMMUNOGLOBULIN G
     Indication: IMMUNE THROMBOCYTOPENIC PURPURA
     Route: 040
     Dates: start: 20171025, end: 20171027

REACTIONS (4)
  - Nephropathy [None]
  - Haemolysis [None]
  - Acute kidney injury [None]
  - Nephropathy toxic [None]

NARRATIVE: CASE EVENT DATE: 20171025
